FAERS Safety Report 6682595-0 (Version None)
Quarter: 2010Q2

REPORT INFORMATION
  Report Type: 
  Country: None (occurrence: None)
  Receive Date: 20100415
  Receipt Date: 20100414
  Transmission Date: 20101027
  Serious: Yes (Death)
  Sender: FDA-Public Use
  Company Number: PHHY2010GB18934

PATIENT
  Sex: Female

DRUGS (7)
  1. CLOZARIL [Suspect]
     Indication: SCHIZOPHRENIA
     Dosage: UNK
     Dates: start: 19950911
  2. CLOZARIL [Suspect]
     Dosage: 325 MG/DAY
     Dates: start: 20100222
  3. AMISULPRIDE [Concomitant]
     Indication: PSYCHOTIC DISORDER
     Route: 048
  4. AMITRIPTYLINE HCL [Concomitant]
     Indication: SALIVARY HYPERSECRETION
     Dosage: 25 MG
     Route: 048
  5. DOCUSATE [Concomitant]
     Route: 048
  6. METFORMIN HCL [Concomitant]
     Indication: DIABETES MELLITUS
     Dosage: 1500 MG
     Route: 048
  7. VALPROATE SODIUM [Concomitant]
     Indication: PSYCHOTIC DISORDER
     Dosage: 1500 MG
     Route: 048

REACTIONS (2)
  - CARDIAC ARREST [None]
  - CHOKING [None]
